FAERS Safety Report 7917549-7 (Version None)
Quarter: 2011Q4

REPORT INFORMATION
  Report Type: 
  Country: None (occurrence: None)
  Receive Date: 20111116
  Receipt Date: 20111107
  Transmission Date: 20120403
  Serious: Yes (Hospitalization)
  Sender: FDA-Public Use
  Company Number: DK-NOVOPROD-327345

PATIENT

DRUGS (10)
  1. NOVOLOG MIX 70/30 [Concomitant]
     Dosage: 40 IU, BID
  2. ASPIRIN AND DIPYRIDAMOLE [Concomitant]
  3. ISOPTIN                            /00014302/ [Concomitant]
     Dosage: 240 MG, QD
  4. PANTOLOC                           /01263202/ [Concomitant]
     Dosage: 40 MG, QD
  5. SIMVASTATIN [Concomitant]
     Dosage: 40 MG, QD
  6. VICTOZA [Suspect]
     Dosage: 1.2 MG, UNK
     Route: 058
     Dates: start: 20101210, end: 20101212
  7. VICTOZA [Suspect]
     Indication: TYPE 2 DIABETES MELLITUS
     Dosage: 0.6 MG, UNK
     Route: 058
  8. FUROSEMIDE [Concomitant]
     Dosage: 40 MG, QID
  9. COZAAR [Concomitant]
     Dosage: 50 MG, BID
  10. HALCION [Concomitant]
     Dosage: 0.5 MG, QD

REACTIONS (2)
  - URTICARIA [None]
  - VOMITING [None]
